FAERS Safety Report 6725647-9 (Version None)
Quarter: 2010Q2

REPORT INFORMATION
  Report Type: 
  Country: None (occurrence: None)
  Receive Date: 20100514
  Receipt Date: 20100512
  Transmission Date: 20101027
  Serious: Yes (Other)
  Sender: FDA-Public Use
  Company Number: US-ROXANE LABORATORIES, INC.-2010-RO-00563RO

PATIENT
  Age: 39 Year
  Sex: Female

DRUGS (7)
  1. TOPIRAMATE [Suspect]
     Indication: CONVULSION
     Dosage: 100 MG
  2. FLUOXETINE [Suspect]
     Dosage: 20 MG
  3. AMANTADINE HCL [Suspect]
     Indication: TREMOR
     Dosage: 100 MG
  4. AMANTADINE HCL [Suspect]
     Indication: FATIGUE
     Dosage: 4200 MG
  5. BUPROPION HCL [Suspect]
     Dosage: 100 MG
  6. CEPAXONE [Suspect]
     Dosage: 20 MG
     Route: 058
  7. CLONAZEPAM [Suspect]
     Dosage: 2 MG
     Route: 058

REACTIONS (2)
  - BLINDNESS [None]
  - CORNEAL OEDEMA [None]
